FAERS Safety Report 14777468 (Version 1)
Quarter: 2018Q2

REPORT INFORMATION
  Report Type: Spontaneous
  Country: IT (occurrence: IT)
  Receive Date: 20180419
  Receipt Date: 20180419
  Transmission Date: 20180711
  Serious: Yes (Hospitalization)
  Sender: FDA-Public Use
  Company Number: IT-SUN PHARMACEUTICAL INDUSTRIES LTD-2018RR-170225

PATIENT
  Age: 60 Year
  Sex: Female

DRUGS (1)
  1. DONEPEZIL. [Suspect]
     Active Substance: DONEPEZIL
     Indication: PRODUCT USED FOR UNKNOWN INDICATION
     Dosage: 14 DF, IN TOTAL
     Route: 048
     Dates: start: 20180322, end: 20180322

REACTIONS (5)
  - Suicide attempt [Recovered/Resolved]
  - Muscular weakness [Recovered/Resolved]
  - Hyperhidrosis [Recovered/Resolved]
  - Bradycardia [Recovered/Resolved]
  - Drug abuse [Recovered/Resolved]

NARRATIVE: CASE EVENT DATE: 20180322
